FAERS Safety Report 7867093-0 (Version None)
Quarter: 2011Q4

REPORT INFORMATION
  Report Type: 
  Country: None (occurrence: None)
  Receive Date: 20111028
  Receipt Date: 20111017
  Transmission Date: 20120403
  Serious: Yes (Other)
  Sender: FDA-Public Use
  Company Number: BR-BRISTOL-MYERS SQUIBB COMPANY-16198269

PATIENT
  Age: 84 Year
  Sex: Female

DRUGS (8)
  1. FLUOXETINE HCL [Suspect]
  2. LEVOTHYROXINE SODIUM [Suspect]
  3. LOSARTAN POTASSIUM [Suspect]
  4. SIMVASTATIN [Suspect]
  5. INDAPAMIDE [Suspect]
  6. METFFORMIN HYDROCHLORIDE [Suspect]
     Dosage: 1DF=850 UNITS NOS
  7. ASPIRIN [Suspect]
  8. DILTIAZEM [Suspect]

REACTIONS (9)
  - DYSPNOEA [None]
  - DIZZINESS [None]
  - BUNDLE BRANCH BLOCK RIGHT [None]
  - HEADACHE [None]
  - VENTRICULAR TACHYCARDIA [None]
  - BLOOD PRESSURE INCREASED [None]
  - RENAL CYST [None]
  - CHEST PAIN [None]
  - DRUG DOSE OMISSION [None]
